FAERS Safety Report 18119015 (Version 1)
Quarter: 2020Q3

REPORT INFORMATION
  Report Type: Spontaneous
  Country: US (occurrence: US)
  Receive Date: 20200806
  Receipt Date: 20200806
  Transmission Date: 20201103
  Serious: Yes (Death)
  Sender: FDA-Public Use
  Company Number: None

PATIENT
  Age: 54 Year
  Sex: Female

DRUGS (3)
  1. TIVICAY [Suspect]
     Active Substance: DOLUTEGRAVIR SODIUM
     Indication: HIV INFECTION
     Route: 048
     Dates: start: 20180110, end: 20200720
  2. TENOFOVIR 300MG [Concomitant]
     Active Substance: TENOFOVIR DISOPROXIL
     Dates: start: 20180110, end: 20200720
  3. EDURANT [Suspect]
     Active Substance: RILPIVIRINE HYDROCHLORIDE
     Indication: HIV INFECTION
     Route: 048
     Dates: start: 20180110, end: 20200720

REACTIONS (1)
  - Death [None]

NARRATIVE: CASE EVENT DATE: 20200806
